FAERS Safety Report 5051291-8 (Version None)
Quarter: 2006Q3

REPORT INFORMATION
  Report Type: 
  Country: None (occurrence: None)
  Receive Date: 20060710
  Receipt Date: 20060524
  Transmission Date: 20061208
  Serious: Yes (Death, Hospitalization)
  Sender: FDA-Public Use
  Company Number: TCI2006A01252

PATIENT
  Age: 9 Decade
  Sex: Male

DRUGS (2)
  1. LEUPLIN SR [Suspect]
     Indication: PROSTATE CANCER
     Dosage: 11.25 MG (11.25 MG, 1 IN 12 WK) PER ORAL
     Route: 048
     Dates: end: 20051215
  2. CASODEX [Suspect]
     Dosage: PER ORAL
     Route: 048

REACTIONS (1)
  - INTERSTITIAL LUNG DISEASE [None]
